FAERS Safety Report 14753306 (Version 1)
Quarter: 2018Q2

REPORT INFORMATION
  Report Type: Spontaneous
  Country: US (occurrence: US)
  Receive Date: 20180406
  Receipt Date: 20180406
  Transmission Date: 20180711
  Serious: Yes (Hospitalization)
  Sender: FDA-Public Use
  Company Number: None

PATIENT
  Age: 66 Year
  Sex: Male
  Weight: 107 kg

DRUGS (1)
  1. APIXABAN [Suspect]
     Active Substance: APIXABAN
     Route: 048
     Dates: start: 20171017, end: 20180108

REACTIONS (3)
  - Haematemesis [None]
  - Catheter site injury [None]
  - Gastric haemorrhage [None]

NARRATIVE: CASE EVENT DATE: 20171229
